FAERS Safety Report 15795472 (Version 9)
Quarter: 2019Q1

REPORT INFORMATION
  Report Type: Report from Study
  Country: US (occurrence: US)
  Receive Date: 20190107
  Receipt Date: 20190322
  Transmission Date: 20190417
  Serious: Yes (Hospitalization, Other)
  Sender: FDA-Public Use
  Company Number: US-GILEAD-2019-0383460

PATIENT
  Age: 68 Year
  Sex: Female

DRUGS (4)
  1. SILDENAFIL CITRATE. [Concomitant]
     Active Substance: SILDENAFIL CITRATE
     Dosage: 40 MG, TID
     Dates: end: 20190205
  2. UPTRAVI [Suspect]
     Active Substance: SELEXIPAG
     Indication: PULMONARY ARTERIAL HYPERTENSION
     Dosage: 800 UG, BID
     Route: 048
  3. AMBRISENTAN [Suspect]
     Active Substance: AMBRISENTAN
     Indication: PULMONARY ARTERIAL HYPERTENSION
     Dosage: 10 MG, QD
     Route: 048
     Dates: start: 20160531
  4. UPTRAVI [Suspect]
     Active Substance: SELEXIPAG
     Dosage: 600 UNK
     Route: 048

REACTIONS (7)
  - Dehydration [Unknown]
  - Pulmonary arterial hypertension [Unknown]
  - Hypotension [Recovered/Resolved]
  - Diarrhoea [Not Recovered/Not Resolved]
  - Cardiogenic shock [Unknown]
  - Hypertension [Unknown]
  - Enterococcal infection [Recovered/Resolved]

NARRATIVE: CASE EVENT DATE: 20190129
